FAERS Safety Report 24140905 (Version 1)
Quarter: 2024Q3

REPORT INFORMATION
  Report Type: Spontaneous
  Country: US (occurrence: US)
  Receive Date: 20240726
  Receipt Date: 20240726
  Transmission Date: 20241017
  Serious: Yes (Other)
  Sender: SANOFI AVENTIS
  Company Number: US-SA-SAC20240724000469

PATIENT
  Sex: Female

DRUGS (2)
  1. KEVZARA [Suspect]
     Active Substance: SARILUMAB
     Indication: Rheumatoid arthritis
     Dosage: 200 MG, QOW
     Route: 058
     Dates: start: 202312
  2. KEVZARA [Suspect]
     Active Substance: SARILUMAB
     Dosage: 200 MG, Q3W
     Route: 058

REACTIONS (2)
  - Rheumatoid arthritis [Unknown]
  - Inappropriate schedule of product administration [Unknown]
